FAERS Safety Report 8999511 (Version 1)
Quarter: 2013Q1

REPORT INFORMATION
  Report Type: Spontaneous
  Country: US (occurrence: US)
  Receive Date: 20130103
  Receipt Date: 20130103
  Transmission Date: 20140127
  Serious: Yes (Hospitalization)
  Sender: FDA-Public Use
  Company Number: US-ROCHE-1171060

PATIENT
  Sex: Female
  Weight: 122.13 kg

DRUGS (32)
  1. PEGASYS [Suspect]
     Indication: HEPATITIS C
     Route: 058
     Dates: start: 20120810, end: 20121023
  2. RIBAVIRIN [Suspect]
     Indication: HEPATITIS C
     Route: 048
     Dates: start: 20120810, end: 20121023
  3. INCIVEK [Suspect]
     Indication: HEPATITIS C
     Dosage: 2 TABS TID
     Route: 048
     Dates: start: 20120810, end: 20121023
  4. HYOSCYAMINE [Concomitant]
     Route: 048
     Dates: start: 20121015
  5. MIRALAX [Concomitant]
     Route: 065
  6. VITAMIN D [Concomitant]
  7. ULTRAM [Concomitant]
  8. SPIRONOLACTONE [Concomitant]
     Route: 048
  9. FUROSEMIDE [Concomitant]
     Route: 048
  10. CALTRATE WITH VITAMIN D [Concomitant]
  11. OMEPRAZOLE [Concomitant]
     Dosage: BEFORE BREAKFAST 30 MIN.
     Route: 048
  12. KCL 10 MEQ [Concomitant]
  13. ZOFRAN [Concomitant]
     Dosage: 1 TABLET 2 TIMES DAILY FOR 10 DAYS.
     Route: 048
  14. ALBUTEROL SULFATE [Concomitant]
     Dosage: 1.25 MG/3ML
     Route: 065
  15. ANUCORT-HC [Concomitant]
  16. CEPHALEXIN [Concomitant]
     Route: 065
  17. DIPHENHYDRAMINE HCL [Concomitant]
     Route: 065
  18. EPOGEN [Concomitant]
     Dosage: 1000 UNITS
     Route: 065
  19. GUAIFENESIN [Concomitant]
     Dosage: 100MG/S ML
     Route: 065
  20. HYDROCERIN CREAM [Concomitant]
  21. LORATADINE [Concomitant]
     Route: 065
  22. OXAZEPAM [Concomitant]
     Route: 065
  23. POTASSIUM CHLORIDE [Concomitant]
     Route: 065
  24. PROCRIT [Concomitant]
     Dosage: 40000 UNIT/ML
     Route: 065
  25. PANTOPRAZOLE [Concomitant]
     Route: 065
  26. MAGIC MOUTH RINSE (UNK INGREDIENTS) [Concomitant]
  27. BENADRYL [Concomitant]
  28. DOXYCYCLINE [Concomitant]
  29. NYSTATIN [Concomitant]
  30. OXYCODONE [Concomitant]
     Route: 048
  31. PROTONIX [Concomitant]
     Route: 048
  32. RIFAXIMIN [Concomitant]
     Route: 048

REACTIONS (12)
  - Bacteraemia [Unknown]
  - Cellulitis [Unknown]
  - Dermatitis [Unknown]
  - Dyspnoea [Unknown]
  - Anaemia [Unknown]
  - Rash [Unknown]
  - Ascites [Unknown]
  - Haemorrhoids [Unknown]
  - Tachycardia [Unknown]
  - Hyponatraemia [Unknown]
  - Depression [Unknown]
  - Hepatic cirrhosis [Unknown]
